FAERS Safety Report 17402963 (Version 2)
Quarter: 2020Q1

REPORT INFORMATION
  Report Type: Spontaneous
  Country: US (occurrence: US)
  Receive Date: 20200211
  Receipt Date: 20200218
  Transmission Date: 20200409
  Serious: No
  Sender: FDA-Public Use
  Company Number: US-PFIZER INC-2020058747

PATIENT
  Age: 77 Year
  Sex: Female

DRUGS (3)
  1. XGEVA [Concomitant]
     Active Substance: DENOSUMAB
     Indication: METASTASES TO BONE
     Dosage: UNK
  2. IBRANCE [Suspect]
     Active Substance: PALBOCICLIB
     Indication: BREAST CANCER METASTATIC
     Dosage: 125 MG, UNK
  3. FASLODEX [Concomitant]
     Active Substance: FULVESTRANT

REACTIONS (4)
  - Neoplasm progression [Unknown]
  - Alopecia [Unknown]
  - Fatigue [Recovering/Resolving]
  - Back pain [Unknown]
